FAERS Safety Report 13927813 (Version 1)
Quarter: 2017Q3

REPORT INFORMATION
  Report Type: Spontaneous
  Country: US (occurrence: None)
  Receive Date: 20170831
  Receipt Date: 20170831
  Transmission Date: 20171127
  Serious: Yes (Hospitalization)
  Sender: FDA-Public Use
  Company Number: None

PATIENT
  Age: 78 Year
  Sex: Female

DRUGS (8)
  1. PROPRANOLOL [Concomitant]
     Active Substance: PROPRANOLOL HYDROCHLORIDE
  2. SUCRALFATE. [Concomitant]
     Active Substance: SUCRALFATE
  3. XIFAXAN [Suspect]
     Active Substance: RIFAXIMIN
     Route: 048
     Dates: start: 20170623
  4. PROCTOZONE [Concomitant]
     Active Substance: HYDROCORTISONE
  5. FAMOTIDINE. [Concomitant]
     Active Substance: FAMOTIDINE
  6. OXAZEPAM. [Concomitant]
     Active Substance: OXAZEPAM
  7. DULOXETINE. [Concomitant]
     Active Substance: DULOXETINE
  8. PREDNISONE. [Concomitant]
     Active Substance: PREDNISONE

REACTIONS (4)
  - Abdominal pain upper [None]
  - Dizziness [None]
  - Rash generalised [None]
  - Asthenia [None]

NARRATIVE: CASE EVENT DATE: 20170824
